FAERS Safety Report 6556031-9 (Version None)
Quarter: 2010Q1

REPORT INFORMATION
  Report Type: 
  Country: None (occurrence: None)
  Receive Date: 20100128
  Receipt Date: 20090414
  Transmission Date: 20100710
  Serious: No
  Sender: FDA-Public Use
  Company Number: US-TEVA-184611USA

PATIENT
  Sex: Female

DRUGS (7)
  1. COPAXONE [Suspect]
     Indication: MULTIPLE SCLEROSIS
     Route: 058
     Dates: start: 20070817, end: 20071001
  2. LORAZEPAM [Concomitant]
  3. CITALOPRAM HYDROBROMIDE [Concomitant]
  4. VICODIN [Concomitant]
  5. GABAPENTIN [Concomitant]
  6. DYAZIDE [Concomitant]
  7. CARBATROL [Concomitant]

REACTIONS (2)
  - PRURITUS [None]
  - RASH [None]
